FAERS Safety Report 7571314-1 (Version None)
Quarter: 2011Q2

REPORT INFORMATION
  Report Type: 
  Country: None (occurrence: None)
  Receive Date: 20110624
  Receipt Date: 20110607
  Transmission Date: 20111010
  Serious: Yes (Death, Hospitalization, Congenital Anomaly)
  Sender: FDA-Public Use
  Company Number: A0932719A

PATIENT
  Sex: Female

DRUGS (1)
  1. PAXIL [Suspect]
     Indication: PRODUCT USED FOR UNKNOWN INDICATION
     Route: 064

REACTIONS (5)
  - DRUG EXPOSURE DURING PREGNANCY [None]
  - TRUNCUS ARTERIOSUS PERSISTENT [None]
  - CONGENITAL CARDIOVASCULAR ANOMALY [None]
  - MATERNAL DRUGS AFFECTING FOETUS [None]
  - INTERRUPTION OF AORTIC ARCH [None]
